FAERS Safety Report 24855905 (Version 1)
Quarter: 2025Q1

REPORT INFORMATION
  Report Type: Spontaneous
  Country: FR (occurrence: FR)
  Receive Date: 20250117
  Receipt Date: 20250117
  Transmission Date: 20250408
  Serious: Yes (Hospitalization)
  Sender: TEVA
  Company Number: None

PATIENT
  Age: 55 Year
  Sex: Male

DRUGS (5)
  1. EPLERENONE [Suspect]
     Active Substance: EPLERENONE
     Indication: Product used for unknown indication
     Dosage: 25 MG IN THE MORNING
     Route: 048
     Dates: start: 20241217
  2. PANTOPRAZOLE [Suspect]
     Active Substance: PANTOPRAZOLE
     Indication: Prophylaxis against gastrointestinal ulcer
     Route: 048
     Dates: start: 20241217
  3. ELIQUIS [Suspect]
     Active Substance: APIXABAN
     Indication: Cardiac ventricular thrombosis
     Dosage: 5 MG 2 TIMES A DAY
     Route: 048
     Dates: start: 20241217
  4. NICOTINAMIDE [Suspect]
     Active Substance: NIACINAMIDE
     Indication: Starvation
     Route: 048
     Dates: start: 20241217
  5. CANRENOATE POTASSIUM\TROMETHAMINE [Suspect]
     Active Substance: CANRENOATE POTASSIUM\TROMETHAMINE
     Indication: Cardiac failure
     Dosage: LYOPHILISATE AND SOLUTION FOR PARENTERAL USE
     Route: 048
     Dates: start: 20241218

REACTIONS (1)
  - Rash maculo-papular [Not Recovered/Not Resolved]

NARRATIVE: CASE EVENT DATE: 20241221
